FAERS Safety Report 7482014-0 (Version None)
Quarter: 2011Q2

REPORT INFORMATION
  Report Type: 
  Country: None (occurrence: None)
  Receive Date: 20110516
  Receipt Date: 20110505
  Transmission Date: 20111010
  Serious: Yes (Hospitalization)
  Sender: FDA-Public Use
  Company Number: CH-BRISTOL-MYERS SQUIBB COMPANY-15745177

PATIENT
  Age: 70 Year
  Sex: Male

DRUGS (7)
  1. PLAVIX [Concomitant]
     Route: 048
     Dates: end: 20110201
  2. GLUCOPHAGE [Suspect]
     Dosage: GLUCOPHAGE, NOON AND EVE;500MG BID,MORNING 850MG OD,TOTAL 1850MG/DAY
     Route: 048
  3. ELTROXIN [Concomitant]
     Route: 048
  4. PRAVASTATIN [Concomitant]
     Route: 048
  5. RAMIPRIL + HCTZ [Concomitant]
     Dosage: 1 DF = 2.5/12.5 UNITS NOS
     Route: 048
     Dates: start: 20110128
  6. ACETYL SALICYLIC ACID USP BAT [Concomitant]
     Dosage: ASS CARDIO
     Route: 048
     Dates: start: 20110204
  7. VOLTAREN [Concomitant]
     Dates: start: 20110121

REACTIONS (2)
  - LACTIC ACIDOSIS [None]
  - RENAL FAILURE ACUTE [None]
